FAERS Safety Report 9164091 (Version 1)
Quarter: 2013Q1

REPORT INFORMATION
  Report Type: Spontaneous
  Country: US (occurrence: US)
  Receive Date: 20130314
  Receipt Date: 20130314
  Transmission Date: 20140127
  Serious: Yes (Death)
  Sender: FDA-Public Use
  Company Number: US-BRISTOL-MYERS SQUIBB COMPANY-17473620

PATIENT
  Sex: 0

DRUGS (1)
  1. ABILIFY [Suspect]
     Dosage: PATIENT WAS OFF MEDICATION SINCE 2-OCT-2012.
     Dates: end: 20121002

REACTIONS (1)
  - Lung neoplasm malignant [Fatal]
